FAERS Safety Report 24093561 (Version 1)
Quarter: 2024Q3

REPORT INFORMATION
  Report Type: Spontaneous
  Country: US (occurrence: US)
  Receive Date: 20240715
  Receipt Date: 20240715
  Transmission Date: 20241017
  Serious: No
  Sender: AMGEN
  Company Number: US-AMGEN-USASP2024136357

PATIENT
  Age: 36 Year
  Sex: Female

DRUGS (1)
  1. TEPEZZA [Suspect]
     Active Substance: TEPROTUMUMAB-TRBW
     Indication: Endocrine ophthalmopathy
     Dosage: UNK UNK, Q3WK
     Route: 042
     Dates: start: 202211, end: 202304

REACTIONS (5)
  - Taste disorder [Recovered/Resolved]
  - Hair disorder [Recovered/Resolved]
  - Abdominal discomfort [Recovered/Resolved]
  - Onychoclasis [Recovered/Resolved]
  - Nail disorder [Recovered/Resolved]

NARRATIVE: CASE EVENT DATE: 20221101
